FAERS Safety Report 10713360 (Version 1)
Quarter: 2015Q1

REPORT INFORMATION
  Report Type: Spontaneous
  Country: US (occurrence: US)
  Receive Date: 20150115
  Receipt Date: 20150115
  Transmission Date: 20150721
  Serious: No
  Sender: FDA-Public Use
  Company Number: US-009507513-1412USA004822

PATIENT
  Age: 22 Year
  Sex: Female
  Weight: 45.35 kg

DRUGS (1)
  1. NEXPLANON [Suspect]
     Active Substance: ETONOGESTREL
     Indication: CONTRACEPTION
     Dosage: UNK
     Route: 059
     Dates: start: 20130723

REACTIONS (5)
  - Haemorrhage [Unknown]
  - Headache [Unknown]
  - Muscle spasms [Unknown]
  - Haemorrhage [Unknown]
  - Mood swings [Unknown]

NARRATIVE: CASE EVENT DATE: 201411
